FAERS Safety Report 8366047-8 (Version None)
Quarter: 2012Q2

REPORT INFORMATION
  Report Type: 
  Country: None (occurrence: None)
  Receive Date: 20120517
  Receipt Date: 20120509
  Transmission Date: 20120825
  Serious: Yes (Other)
  Sender: FDA-Public Use
  Company Number: JP-UCBSA-057074

PATIENT
  Age: 47 Year
  Sex: Female
  Weight: 53 kg

DRUGS (2)
  1. KEPPRA [Suspect]
     Indication: ELECTROENCEPHALOGRAM ABNORMAL
     Route: 048
     Dates: start: 20111226, end: 20120412
  2. DESMOPRESSIN ACETATE [Concomitant]
     Dosage: DAILY DOSE:0.02 ML
     Route: 045

REACTIONS (1)
  - PYREXIA [None]
